FAERS Safety Report 6996848-X (Version None)
Quarter: 2010Q3

REPORT INFORMATION
  Report Type: 
  Country: None (occurrence: None)
  Receive Date: 20100918
  Receipt Date: 20090806
  Transmission Date: 20110219
  Serious: No
  Sender: FDA-Public Use
  Company Number: US-WYE-H10487709

PATIENT
  Sex: Female
  Weight: 52.21 kg

DRUGS (4)
  1. EFFEXOR XR [Suspect]
     Indication: HOT FLUSH
     Route: 048
     Dates: start: 20090201, end: 20090801
  2. EFFEXOR XR [Suspect]
     Dosage: UNKNOWN WHETHER SHE TAPERED ACCORDING TO PHYSICIAN'S ADVICE
     Route: 048
     Dates: start: 20090805, end: 20090801
  3. LEVOTHYROXINE [Concomitant]
  4. CONJUGATED ESTROGENS [Concomitant]

REACTIONS (12)
  - ABDOMINAL PAIN UPPER [None]
  - ASTHENIA [None]
  - CONSTIPATION [None]
  - DIZZINESS [None]
  - DRUG WITHDRAWAL SYNDROME [None]
  - FLATULENCE [None]
  - FOOD INTOLERANCE [None]
  - MALAISE [None]
  - MUSCLE TWITCHING [None]
  - NAUSEA [None]
  - RETCHING [None]
  - UNEVALUABLE EVENT [None]
